FAERS Safety Report 23181300 (Version 1)
Quarter: 2023Q4

REPORT INFORMATION
  Report Type: Spontaneous
  Country: US (occurrence: None)
  Receive Date: 20231110
  Receipt Date: 20231110
  Transmission Date: 20240109
  Serious: Yes (Congenital Anomaly)
  Sender: FDA-Public Use
  Company Number: None

PATIENT
  Sex: Male
  Weight: 3.5 kg

DRUGS (5)
  1. METOCLOPRAMIDE [Suspect]
     Active Substance: METOCLOPRAMIDE
  2. ONDANSETRON [Suspect]
     Active Substance: ONDANSETRON
  3. ALBUTEROL [Suspect]
     Active Substance: ALBUTEROL
  4. METHYLPHENIDATE [Suspect]
     Active Substance: METHYLPHENIDATE
  5. FLUOXETINE [Suspect]
     Active Substance: FLUOXETINE HYDROCHLORIDE

REACTIONS (2)
  - Ventricular septal defect [None]
  - Maternal drugs affecting foetus [None]

NARRATIVE: CASE EVENT DATE: 20221214
